FAERS Safety Report 8389640-5 (Version None)
Quarter: 2012Q2

REPORT INFORMATION
  Report Type: 
  Country: None (occurrence: None)
  Receive Date: 20120528
  Receipt Date: 20120516
  Transmission Date: 20120825
  Serious: Yes (Other)
  Sender: FDA-Public Use
  Company Number: JP-ROCHE-679284

PATIENT
  Sex: Female

DRUGS (12)
  1. ACTEMRA [Suspect]
     Route: 041
     Dates: start: 20090521, end: 20090521
  2. NORVASC [Concomitant]
     Indication: HYPERTENSION
     Route: 048
  3. ACTEMRA [Suspect]
     Route: 041
     Dates: start: 20090618, end: 20090618
  4. LIPITOR [Concomitant]
     Indication: HYPERLIPIDAEMIA
     Route: 048
  5. ACTEMRA [Suspect]
     Indication: RHEUMATOID ARTHRITIS
     Route: 041
     Dates: start: 20090321, end: 20090321
  6. LIPITOR [Concomitant]
     Indication: HYPERTENSION
     Route: 048
  7. ACTEMRA [Suspect]
     Route: 041
     Dates: start: 20090716, end: 20090716
  8. PREDNISOLONE [Concomitant]
     Indication: RHEUMATOID ARTHRITIS
     Route: 048
     Dates: end: 20090617
  9. ACTEMRA [Suspect]
     Route: 041
     Dates: start: 20090420, end: 20090420
  10. ACTEMRA [Suspect]
     Route: 041
     Dates: start: 20090917, end: 20091224
  11. ACTEMRA [Suspect]
     Route: 041
     Dates: start: 20090813, end: 20090813
  12. PREDNISOLONE [Concomitant]
     Route: 048
     Dates: start: 20090618

REACTIONS (3)
  - BASEDOW'S DISEASE [None]
  - INFUSION RELATED REACTION [None]
  - SHOCK [None]
